FAERS Safety Report 15986264 (Version 1)
Quarter: 2019Q1

REPORT INFORMATION
  Report Type: Spontaneous
  Country: US (occurrence: US)
  Receive Date: 20190220
  Receipt Date: 20190220
  Transmission Date: 20190418
  Serious: No
  Sender: FDA-Public Use
  Company Number: US-BAYER-2019-034711

PATIENT
  Sex: Female

DRUGS (2)
  1. LOTRIMIN ULTRA ANTIFUNGAL [Suspect]
     Active Substance: BUTENAFINE HYDROCHLORIDE
     Dosage: UNK
     Route: 065
     Dates: start: 20190214
  2. LOTRIMIN [Suspect]
     Active Substance: CLOTRIMAZOLE
     Dosage: UNK
     Route: 065
     Dates: start: 20190214

REACTIONS (1)
  - Expired product administered [Unknown]

NARRATIVE: CASE EVENT DATE: 20190214
